FAERS Safety Report 17289791 (Version 1)
Quarter: 2020Q1

REPORT INFORMATION
  Report Type: Report from Study
  Country: US (occurrence: US)
  Receive Date: 20200120
  Receipt Date: 20200120
  Transmission Date: 20200409
  Serious: Yes (Hospitalization)
  Sender: FDA-Public Use
  Company Number: US-BAYER-2020-010269

PATIENT
  Age: 64 Year
  Sex: Female

DRUGS (1)
  1. STIVARGA [Suspect]
     Active Substance: REGORAFENIB
     Dosage: DAILY DOSE 120 MG
     Dates: start: 20190326

REACTIONS (2)
  - Hospitalisation [Recovered/Resolved]
  - Off label use [None]

NARRATIVE: CASE EVENT DATE: 20190326
